FAERS Safety Report 16445540 (Version 1)
Quarter: 2019Q2

REPORT INFORMATION
  Report Type: Spontaneous
  Country: US (occurrence: US)
  Receive Date: 20190508
  Receipt Date: 20190508
  Transmission Date: 20190711
  Serious: No
  Sender: FDA-Public Use
  Company Number: None

PATIENT
  Age: 44 Year
  Sex: Female

DRUGS (1)
  1. BUPRENORPHINE - NALOXONE FILMS, 8-2 MG [Suspect]
     Active Substance: BUPRENORPHINE\NALOXONE
     Indication: SPINAL COMPRESSION FRACTURE
     Route: 048
     Dates: start: 20190422

REACTIONS (1)
  - Hypersensitivity [None]
